FAERS Safety Report 16712051 (Version 1)
Quarter: 2019Q3

REPORT INFORMATION
  Report Type: Spontaneous
  Country: NL (occurrence: NL)
  Receive Date: 20190816
  Receipt Date: 20190816
  Transmission Date: 20191004
  Serious: Yes (Other)
  Sender: FDA-Public Use
  Company Number: NL-MYLANLABS-2019M1076360

PATIENT
  Age: 64 Year
  Sex: Male

DRUGS (3)
  1. CALCIUM + VITAMIN D                /00944201/ [Concomitant]
     Active Substance: CALCIUM CARBONATE\CHOLECALCIFEROL
     Dosage: UNK
  2. ALENDRONATE [Suspect]
     Active Substance: ALENDRONATE SODIUM
     Indication: OSTEOPOROSIS PROPHYLAXIS
     Dosage: 1 KEER PER WEEK
     Route: 048
     Dates: start: 201806, end: 20190411
  3. PREDNISON [Concomitant]
     Active Substance: PREDNISONE
     Dosage: IN AFBOUWSCHEMA; GESTART VANAF 60MG, ECHTER LAATSTE MAANDEN DOSERINGEN LESS THAN 10MG

REACTIONS (2)
  - Dental necrosis [Not Recovered/Not Resolved]
  - Tooth loss [Not Recovered/Not Resolved]
